FAERS Safety Report 21557266 (Version 1)
Quarter: 2022Q4

REPORT INFORMATION
  Report Type: Spontaneous
  Country: SG (occurrence: SG)
  Receive Date: 20221105
  Receipt Date: 20221105
  Transmission Date: 20230113
  Serious: Yes (Other)
  Sender: FDA-Public Use
  Company Number: None

PATIENT
  Age: 14 Year
  Sex: Male

DRUGS (13)
  1. PREDNISOLONE [Suspect]
     Active Substance: PREDNISOLONE
     Indication: Cholangitis sclerosing
     Dosage: 5 MILLIGRAM/PER DAY, CHRONIC LOW DOSE, DAILY
     Route: 065
  2. PREDNISOLONE [Suspect]
     Active Substance: PREDNISOLONE
     Indication: Autoimmune hepatitis
  3. AZATHIOPRINE [Suspect]
     Active Substance: AZATHIOPRINE
     Indication: Cholangitis sclerosing
     Dosage: UNK
     Route: 065
  4. AZATHIOPRINE [Suspect]
     Active Substance: AZATHIOPRINE
     Indication: Autoimmune hepatitis
  5. CALCITRIOL [Suspect]
     Active Substance: CALCITRIOL
     Indication: Hypophosphataemia
     Dosage: 0.5 MICROGRAM/PER DAY
     Route: 065
  6. CALCITRIOL [Suspect]
     Active Substance: CALCITRIOL
     Dosage: UNK, INCREASING DOSES
     Route: 065
  7. CHOLECALCIFEROL [Suspect]
     Active Substance: CHOLECALCIFEROL
     Indication: Hypophosphataemia
     Dosage: 1000 UNITS/PER DAY, DOSAGE: 1000 UNITS/DAY FOLLOWED BY 2000 UNITS/DAY AND THEN 4000 UNITS/DAY
     Route: 065
  8. CHOLECALCIFEROL [Suspect]
     Active Substance: CHOLECALCIFEROL
     Dosage: 2000 UNITS PER DAY
     Route: 065
  9. CHOLECALCIFEROL [Suspect]
     Active Substance: CHOLECALCIFEROL
     Dosage: 4000 UNITS PER DAY
     Route: 065
  10. ERGOCALCIFEROL [Suspect]
     Active Substance: ERGOCALCIFEROL
     Indication: Hypophosphataemia
     Dosage: 100000 UNITS, EVERY 3 DAYS
     Route: 065
  11. SODIUM PHOSPHATE, MONOBASIC [Suspect]
     Active Substance: SODIUM PHOSPHATE, MONOBASIC
     Indication: Hypophosphataemia
     Dosage: 0.8 MMOL/KG/DAY
     Route: 048
  12. SODIUM PHOSPHATE, MONOBASIC [Suspect]
     Active Substance: SODIUM PHOSPHATE, MONOBASIC
     Dosage: UNK (COMMENCED ON HIGH DOSES)
     Route: 048
  13. ZOLEDRONIC ACID [Suspect]
     Active Substance: ZOLEDRONIC ACID
     Indication: Hypophosphataemia
     Dosage: 0.02 MILLIGRAM/KILOGRAM, CYCLICAL, EVERY 6 MONTHS
     Route: 042

REACTIONS (7)
  - Osteodystrophy [Recovered/Resolved]
  - Liver disorder [Recovered/Resolved]
  - Condition aggravated [Recovered/Resolved]
  - Osteopenia [Recovered/Resolved]
  - Spinal compression fracture [Recovered/Resolved]
  - Drug ineffective [Unknown]
  - Off label use [Unknown]
